FAERS Safety Report 20619562 (Version 1)
Quarter: 2022Q1

REPORT INFORMATION
  Report Type: Spontaneous
  Country: US (occurrence: US)
  Receive Date: 20220322
  Receipt Date: 20220322
  Transmission Date: 20220424
  Serious: No
  Sender: FDA-Public Use
  Company Number: US-APOTEX-2021AP010194

PATIENT
  Sex: Female

DRUGS (1)
  1. IBANDRONATE SODIUM [Suspect]
     Active Substance: IBANDRONATE SODIUM
     Indication: Bone density decreased
     Dosage: 500 MILLIGRAM, Q.M.T. (1 TABLET)
     Route: 048
     Dates: start: 20210418

REACTIONS (4)
  - Decreased appetite [Recovered/Resolved]
  - Fatigue [Recovered/Resolved]
  - Abdominal pain upper [Recovered/Resolved]
  - Diarrhoea [Recovered/Resolved]

NARRATIVE: CASE EVENT DATE: 20210418
